FAERS Safety Report 8237336 (Version 3)
Quarter: 2012Q4

REPORT INFORMATION
  Report Type: Report from Study
  Country: DE (occurrence: DE)
  Receive Date: 20111109
  Receipt Date: 20121029
  Transmission Date: 20130627
  Serious: Yes (Life-Threatening, Other)
  Sender: FDA-Public Use
  Company Number: DE-AMGEN-DEUCT2011057833

PATIENT
  Age: 59 Year
  Sex: Male

DRUGS (13)
  1. PANITUMUMAB [Suspect]
     Indication: GASTRIC CANCER
     Dosage: 9 mg/kg, UNK
     Route: 042
     Dates: start: 20110907
  2. CAPECITABINE [Concomitant]
     Indication: GASTRIC CANCER
     Dosage: 1216 mg/m2, qd
     Route: 048
     Dates: start: 20110907
  3. EPIRUBICIN [Concomitant]
     Indication: GASTRIC CANCER
     Dosage: 50 mg/m2, UNK
     Route: 042
     Dates: start: 20110908
  4. CISPLATIN [Concomitant]
     Indication: GASTRIC CANCER
     Dosage: 60 mg/m2, UNK
     Route: 042
     Dates: start: 20110908
  5. FENISTIL [Concomitant]
     Dosage: UNK
     Dates: start: 20110907, end: 20110908
  6. RANITIC [Concomitant]
     Dosage: UNK
     Dates: start: 20110907, end: 20110908
  7. FORTECORTIN [Concomitant]
     Dosage: UNK
     Dates: start: 20110907, end: 20110908
  8. EMEND [Concomitant]
     Dosage: UNK
     Dates: start: 20110907, end: 20110908
  9. KEVATRIL [Concomitant]
     Indication: VOMITING
     Dosage: UNK
     Dates: start: 20110907, end: 20110908
  10. CLEXANE [Concomitant]
  11. BISOPROLOL [Concomitant]
  12. PANTOZOL [Concomitant]
  13. SIMVASTATIN [Concomitant]

REACTIONS (2)
  - Neutropenia [Recovered/Resolved]
  - Pyrexia [Recovered/Resolved]
